FAERS Safety Report 9183965 (Version 2)
Quarter: 2013Q2

REPORT INFORMATION
  Report Type: Report from Study
  Country: FR (occurrence: FR)
  Receive Date: 20130322
  Receipt Date: 20130607
  Transmission Date: 20140414
  Serious: Yes (Hospitalization, Other)
  Sender: FDA-Public Use
  Company Number: FR-NAPPMUNDI-DEU-2013-0010879

PATIENT
  Age: 62 Year
  Sex: Female
  Weight: 47 kg

DRUGS (10)
  1. OXYCODONE HYDROCHLORIDE [Suspect]
     Indication: PRODUCT USED FOR UNKNOWN INDICATION
     Route: 065
  2. MDM2 ANTAGONIST (RO 5045337) [Suspect]
     Indication: SARCOMA
     Dosage: 1000 MG, SEE TEXT
     Route: 048
     Dates: start: 20121011, end: 20121108
  3. DOXORUBICINE [Suspect]
     Indication: SARCOMA
     Dosage: 78.5 MG/M2, SEE TEXT
     Route: 042
     Dates: start: 20121011, end: 20121108
  4. DOXORUBICINE [Suspect]
     Dosage: 50 MG/M2, SEE TEXT
     Route: 042
     Dates: start: 20121011
  5. AVLOCARDYL /00030001/ [Concomitant]
  6. TOPALGIC                           /00599202/ [Concomitant]
     Dosage: 200 MG, DAILY
     Dates: start: 20121012
  7. OROCAL /00751519/ [Concomitant]
  8. OPTRUMA [Concomitant]
  9. EUPANTOL [Concomitant]
  10. BI-PROFENID [Concomitant]

REACTIONS (7)
  - Faecalith [Recovered/Resolved]
  - Rectal obstruction [Recovered/Resolved]
  - Pyrexia [Recovered/Resolved]
  - Febrile neutropenia [Recovered/Resolved]
  - Malnutrition [Recovered/Resolved]
  - Mucosal inflammation [Recovered/Resolved]
  - Febrile bone marrow aplasia [None]
